FAERS Safety Report 17355263 (Version 1)
Quarter: 2020Q1

REPORT INFORMATION
  Report Type: Spontaneous
  Country: JP (occurrence: JP)
  Receive Date: 20200131
  Receipt Date: 20200131
  Transmission Date: 20200409
  Serious: No
  Sender: FDA-Public Use
  Company Number: JP-TOLMAR, INC.-19JP001139

PATIENT
  Age: 41 Year
  Sex: Male

DRUGS (1)
  1. ELIGARD [Suspect]
     Active Substance: LEUPROLIDE ACETATE
     Indication: ANDROGENS DECREASED
     Dosage: UNK
     Route: 065

REACTIONS (1)
  - Libido decreased [Unknown]
